FAERS Safety Report 8960532 (Version 1)
Quarter: 2012Q4

REPORT INFORMATION
  Report Type: Spontaneous
  Country: GB (occurrence: None)
  Receive Date: 20121203
  Receipt Date: 20121203
  Transmission Date: 20130627
  Serious: Yes (Disabling, Other)
  Sender: FDA-Public Use
  Company Number: GER/UKI/12/0026857

PATIENT
  Age: 80 Year
  Sex: Female
  Weight: 63 kg

DRUGS (4)
  1. CLOPIDOGREL [Suspect]
     Indication: TRANSIENT ISCHAEMIC ATTACK
     Route: 048
     Dates: start: 20120731, end: 20120814
  2. ASPIRIN [Concomitant]
  3. ATORVASTATIN (ATORVASTATIN) [Concomitant]
  4. PERSANTIN RETARD (DIPYRIDAMOLE) [Concomitant]

REACTIONS (4)
  - Disorientation [None]
  - Confusional state [None]
  - Suicidal ideation [None]
  - Decreased activity [None]
